FAERS Safety Report 4842891-6 (Version None)
Quarter: 2005Q4

REPORT INFORMATION
  Report Type: 
  Country: None (occurrence: None)
  Receive Date: 20051201
  Receipt Date: 20051118
  Transmission Date: 20060501
  Serious: Yes (Hospitalization, Other)
  Sender: FDA-Public Use
  Company Number: PHBS2005CH16961

PATIENT
  Age: 78 Year
  Sex: Male

DRUGS (5)
  1. SINTROM [Suspect]
     Dosage: UNK, PRN
     Dates: end: 20050809
  2. LESCOL [Suspect]
     Dosage: 1 DF, QD
     Dates: start: 20050701, end: 20050809
  3. ASPIRIN [Suspect]
     Dosage: 100 MG/DAY
  4. FOLVITE [Concomitant]
     Dosage: 1 MG/DAY
  5. BLOPRESS [Concomitant]
     Dosage: 8 MG/DAY

REACTIONS (13)
  - ALANINE AMINOTRANSFERASE INCREASED [None]
  - ASPARTATE AMINOTRANSFERASE INCREASED [None]
  - BLOOD ALKALINE PHOSPHATASE INCREASED [None]
  - BLOOD BILIRUBIN INCREASED [None]
  - DIARRHOEA [None]
  - FAECES DISCOLOURED [None]
  - GAMMA-GLUTAMYLTRANSFERASE INCREASED [None]
  - HAEMATOMA [None]
  - HAEMATURIA [None]
  - INTERNATIONAL NORMALISED RATIO INCREASED [None]
  - JAUNDICE [None]
  - LIVER DISORDER [None]
  - SKIN HAEMORRHAGE [None]
